FAERS Safety Report 25713088 (Version 1)
Quarter: 2025Q3

REPORT INFORMATION
  Report Type: Spontaneous
  Country: US (occurrence: US)
  Receive Date: 20250822
  Receipt Date: 20250822
  Transmission Date: 20251020
  Serious: No
  Sender: TAKEDA
  Company Number: US-TAKEDA-2025TUS072308

PATIENT
  Age: 48 Year
  Sex: Female

DRUGS (4)
  1. CARBAMAZEPINE [Suspect]
     Active Substance: CARBAMAZEPINE
     Indication: Product used for unknown indication
  2. GABAPENTIN [Suspect]
     Active Substance: GABAPENTIN
     Indication: Product used for unknown indication
     Dosage: UNK, QD
  3. GABAPENTIN [Suspect]
     Active Substance: GABAPENTIN
     Dosage: UNK, BID
  4. BACLOFEN [Suspect]
     Active Substance: BACLOFEN
     Indication: Product used for unknown indication

REACTIONS (1)
  - Blood cholesterol increased [Recovered/Resolved with Sequelae]

NARRATIVE: CASE EVENT DATE: 20241126
